FAERS Safety Report 7191460-4 (Version None)
Quarter: 2010Q4

REPORT INFORMATION
  Report Type: 
  Country: None (occurrence: None)
  Receive Date: 20101223
  Receipt Date: 20100816
  Transmission Date: 20110411
  Serious: No
  Sender: FDA-Public Use
  Company Number: US-AMGEN-KDL431795

PATIENT

DRUGS (2)
  1. ENBREL [Suspect]
     Indication: RHEUMATOID ARTHRITIS
     Dosage: 25 MG, QWK
     Route: 058
     Dates: start: 20050105
  2. ENBREL [Suspect]
     Indication: PSORIASIS

REACTIONS (5)
  - ERYTHEMA [None]
  - FEELING HOT [None]
  - PAIN OF SKIN [None]
  - SKIN BURNING SENSATION [None]
  - SWELLING [None]
